FAERS Safety Report 23555768 (Version 1)
Quarter: 2024Q1

REPORT INFORMATION
  Report Type: Spontaneous
  Country: US (occurrence: US)
  Receive Date: 20240222
  Receipt Date: 20240222
  Transmission Date: 20240409
  Serious: No
  Sender: FDA-Public Use
  Company Number: US-009507513-2402USA007900

PATIENT
  Age: 65 Year
  Sex: Female

DRUGS (1)
  1. WELIREG [Suspect]
     Active Substance: BELZUTIFAN
     Indication: Clear cell renal cell carcinoma
     Dosage: 120 MILLIGRAM, QD
     Route: 048
     Dates: start: 202204

REACTIONS (1)
  - Adverse drug reaction [Unknown]
